FAERS Safety Report 11177264 (Version 1)
Quarter: 2015Q2

REPORT INFORMATION
  Report Type: Spontaneous
  Country: US (occurrence: None)
  Receive Date: 20150609
  Receipt Date: 20150609
  Transmission Date: 20150821
  Serious: No
  Sender: FDA-Public Use
  Company Number: None

PATIENT
  Age: 30 Year
  Sex: Male

DRUGS (13)
  1. ZOFRAN [Concomitant]
     Active Substance: ONDANSETRON HYDROCHLORIDE
  2. HEPARIN LOCK INJ [Concomitant]
  3. SOD CHLORIDE INJ [Concomitant]
  4. FLUOROURACIL INJ [Concomitant]
  5. OXALIPLATIN INJ [Concomitant]
  6. LEUCOVOR CA INJ [Concomitant]
  7. DEXAMETHASONE PHOS [Suspect]
     Active Substance: DEXAMETHASONE SODIUM PHOSPHATE
     Indication: COLON CANCER
     Dosage: 20MG ON DAY 1 IV
     Route: 042
     Dates: start: 20140918, end: 20150608
  8. DIPHENHYDRAM INJ [Concomitant]
  9. PANTOPRAZOLE [Concomitant]
     Active Substance: PANTOPRAZOLE SODIUM
  10. IMODIUM ADV [Concomitant]
  11. IRON [Concomitant]
     Active Substance: IRON
  12. GRANISETRON INJ [Concomitant]
  13. DEXAMETH SOD POW PHOSPHA [Concomitant]

REACTIONS (1)
  - Therapy cessation [None]

NARRATIVE: CASE EVENT DATE: 20150608
